FAERS Safety Report 14602573 (Version 1)
Quarter: 2018Q1

REPORT INFORMATION
  Report Type: Spontaneous
  Country: US (occurrence: US)
  Receive Date: 20180306
  Receipt Date: 20180306
  Transmission Date: 20180509
  Serious: No
  Sender: FDA-Public Use
  Company Number: US-PFIZER INC-2018090387

PATIENT
  Age: 53 Year
  Sex: Female

DRUGS (1)
  1. IBRANCE [Suspect]
     Active Substance: PALBOCICLIB
     Indication: BONE CANCER
     Dosage: 100 MG, CYCLIC (DAILY FOR 21 DAYS EVERY 28 DAYS)
     Route: 048
     Dates: start: 201802

REACTIONS (4)
  - Tachycardia [Unknown]
  - Decreased appetite [Unknown]
  - Nausea [Unknown]
  - Feeling of body temperature change [Unknown]
